FAERS Safety Report 19533732 (Version 1)
Quarter: 2021Q3

REPORT INFORMATION
  Report Type: Spontaneous
  Country: DE (occurrence: DE)
  Receive Date: 20210713
  Receipt Date: 20210713
  Transmission Date: 20211014
  Serious: Yes (Hospitalization, Other)
  Sender: FDA-Public Use
  Company Number: DE-MYLANLABS-2021M1040657

PATIENT
  Age: 81 Year
  Sex: Female
  Weight: 71 kg

DRUGS (8)
  1. HYGROTON [Suspect]
     Active Substance: CHLORTHALIDONE
     Indication: PRODUCT USED FOR UNKNOWN INDICATION
     Dosage: 25 MILLIGRAM, QD (25 MG, 1?0?0?0)
  2. TORASEMID [Concomitant]
     Active Substance: TORSEMIDE
     Dosage: 10 MILLIGRAM (10 MG, 1?0.5?0?0)
  3. BISOPROLOL [Concomitant]
     Active Substance: BISOPROLOL
     Dosage: 1.25 MILLIGRAM, BID (1.25 MG, 1?0?1?0)
  4. ZOPICLON [Concomitant]
     Active Substance: ZOPICLONE
     Dosage: 7.5 MILLIGRAM (7.5 MG, 0?0?0?0.5)
  5. CANDESARTAN. [Suspect]
     Active Substance: CANDESARTAN
     Indication: PRODUCT USED FOR UNKNOWN INDICATION
     Dosage: 32 MILLIGRAM (32 MG, 0.5?0?0.5?0)
  6. CISPLATIN. [Suspect]
     Active Substance: CISPLATIN
     Indication: PRODUCT USED FOR UNKNOWN INDICATION
     Dosage: UNK (LAST 21102020)
  7. TRAMADOL. [Concomitant]
     Active Substance: TRAMADOL
     Dosage: 20 MILLIGRAM, BID (200 MG, 0?1?0?1)
  8. GEMCITABINE. [Suspect]
     Active Substance: GEMCITABINE
     Indication: PRODUCT USED FOR UNKNOWN INDICATION
     Dosage: UNK (LAST 21102020)

REACTIONS (7)
  - Oedema peripheral [Unknown]
  - Condition aggravated [Unknown]
  - Pancytopenia [Unknown]
  - General physical health deterioration [Unknown]
  - Erythema [Unknown]
  - Peripheral swelling [Unknown]
  - Strabismus [Unknown]
